FAERS Safety Report 10025999 (Version 1)
Quarter: 2014Q1

REPORT INFORMATION
  Report Type: Spontaneous
  Country: GB (occurrence: None)
  Receive Date: 20140318
  Receipt Date: 20140318
  Transmission Date: 20141002
  Serious: Yes (Other)
  Sender: FDA-Public Use
  Company Number: 2014-000711

PATIENT
  Age: 62 Year
  Sex: Male
  Weight: 88 kg

DRUGS (3)
  1. DORYX (DOXYCYCLINE HYCLATE) PROLONGED-RELEASE TABLET, 200MG [Suspect]
     Route: 048
     Dates: start: 20131121
  2. AMOXICILLIN (AMOXICILLIN) [Suspect]
  3. CEFALEXIN (CEFALEXIN) [Concomitant]
     Dosage: PO.
     Dates: start: 20131121

REACTIONS (2)
  - Diplopia [None]
  - VIth nerve paralysis [None]
